FAERS Safety Report 15539194 (Version 1)
Quarter: 2018Q4

REPORT INFORMATION
  Report Type: Spontaneous
  Country: US (occurrence: US)
  Receive Date: 20181022
  Receipt Date: 20181022
  Transmission Date: 20190205
  Serious: No
  Sender: FDA-Public Use
  Company Number: US-ACTELION-A-US2018-179769

PATIENT
  Age: 50 Year
  Sex: Male

DRUGS (5)
  1. TADALAFIL. [Concomitant]
     Active Substance: TADALAFIL
     Dosage: 40 MG, UNK
     Route: 048
     Dates: start: 20170424
  2. REMODULIN [Concomitant]
     Active Substance: TREPROSTINIL
     Dosage: 0.024 ML/HR, UNK
  3. OPSUMIT [Suspect]
     Active Substance: MACITENTAN
     Indication: PULMONARY ARTERIAL HYPERTENSION
     Dosage: 10 MG, UNK
     Route: 048
     Dates: start: 20150325
  4. REMODULIN [Concomitant]
     Active Substance: TREPROSTINIL
     Dosage: 0.014 ML/HR, UNK
  5. REMODULIN [Concomitant]
     Active Substance: TREPROSTINIL
     Dosage: 0.03 ML/HR, UNK

REACTIONS (2)
  - Product dose omission [Unknown]
  - Nasopharyngitis [Recovering/Resolving]

NARRATIVE: CASE EVENT DATE: 201809
